FAERS Safety Report 10190318 (Version 1)
Quarter: 2014Q2

REPORT INFORMATION
  Report Type: Spontaneous
  Country: US (occurrence: US)
  Receive Date: 20140522
  Receipt Date: 20140522
  Transmission Date: 20141212
  Serious: No
  Sender: FDA-Public Use
  Company Number: US-ASTRAZENECA-2014SE03130

PATIENT
  Age: 59 Year
  Sex: Male
  Weight: 100.7 kg

DRUGS (4)
  1. PULMICORT FLEXHALER [Suspect]
     Indication: LUNG DISORDER
     Route: 055
     Dates: start: 2013
  2. ADVAIR [Concomitant]
     Indication: LUNG DISORDER
     Dosage: UNKNOWN BID
     Route: 055
  3. COMPAVENT [Concomitant]
     Indication: LUNG DISORDER
     Dosage: 100 PRN
     Route: 055
  4. UNSPECIFIED MEDICATION [Concomitant]
     Indication: HYPERCHOLESTEROLAEMIA
     Dosage: UNKNOWN UNK
     Dates: start: 2011

REACTIONS (6)
  - Asthma [Unknown]
  - Emphysema [Unknown]
  - Drug ineffective [Unknown]
  - Device difficult to use [Unknown]
  - Circumstance or information capable of leading to medication error [Unknown]
  - Intentional product misuse [Unknown]
